FAERS Safety Report 5446639-6 (Version None)
Quarter: 2007Q3

REPORT INFORMATION
  Report Type: 
  Country: None (occurrence: None)
  Receive Date: 20070907
  Receipt Date: 20070831
  Transmission Date: 20080115
  Serious: Yes (Death, Other)
  Sender: FDA-Public Use
  Company Number: JP-PFIZER INC-2007067851

PATIENT
  Age: 67 Year
  Sex: Male

DRUGS (4)
  1. IRINOTECAN HCL [Suspect]
  2. CISPLATIN [Suspect]
  3. ETOPOSIDE [Suspect]
  4. DOCETAXEL [Suspect]

REACTIONS (3)
  - DISEASE PROGRESSION [None]
  - LEUKAEMIA [None]
  - SMALL CELL LUNG CANCER STAGE UNSPECIFIED [None]
